FAERS Safety Report 26040062 (Version 1)
Quarter: 2025Q4

REPORT INFORMATION
  Report Type: Spontaneous
  Country: TN (occurrence: TN)
  Receive Date: 20251113
  Receipt Date: 20251113
  Transmission Date: 20260117
  Serious: Yes (Other)
  Sender: AMGEN
  Company Number: TN-AMGEN-TUNSP2025223038

PATIENT

DRUGS (1)
  1. ETANERCEPT [Suspect]
     Active Substance: ETANERCEPT
     Indication: Rheumatoid arthritis
     Dosage: UNK
     Route: 065

REACTIONS (6)
  - Hepatic cytolysis [Unknown]
  - Neutropenia [Unknown]
  - Drug ineffective [Unknown]
  - Infection [Unknown]
  - Skin reaction [Unknown]
  - Hypersensitivity [Unknown]
